FAERS Safety Report 25524911 (Version 2)
Quarter: 2025Q4

REPORT INFORMATION
  Report Type: Spontaneous
  Country: US (occurrence: US)
  Receive Date: 20250707
  Receipt Date: 20251005
  Transmission Date: 20260118
  Serious: No
  Sender: BRISTOL-MYERS SQUIBB COMPANY
  Company Number: US-BRISTOL-MYERS SQUIBB COMPANY-2025-095497

PATIENT
  Age: 71 Year
  Sex: Male

DRUGS (4)
  1. SPRYCEL [Suspect]
     Active Substance: DASATINIB
     Indication: Chronic myeloid leukaemia
     Dosage: FREQUENCY: TAKE 2 TABLETS (40 MG) BY MOUTH 1 TIME A DAY MONDAY AND THURSDAY
     Dates: start: 202405
  2. SPRYCEL [Suspect]
     Active Substance: DASATINIB
     Dosage: FREQUENCY:1 TABLET (20 MG) ON TUESDAY, WEDNESDAY, FRIDAY, SATURDAY, AND SUNDAY.
  3. SPRYCEL [Suspect]
     Active Substance: DASATINIB
     Dosage: FREQUENCY: TAKE 2 TABLETS (20 MG) BY MOUTH 1 TIME A DAY MONDAY AND THURSDAY
     Dates: start: 202507
  4. SPRYCEL [Suspect]
     Active Substance: DASATINIB
     Dosage: FREQUENCY:1 TABLET (20 MG) ON TUESDAY, WEDNESDAY, FRIDAY, SATURDAY, AND SUNDAY.

REACTIONS (1)
  - Constipation [Not Recovered/Not Resolved]
